FAERS Safety Report 15939772 (Version 1)
Quarter: 2019Q1

REPORT INFORMATION
  Report Type: Spontaneous
  Country: US (occurrence: US)
  Receive Date: 20190208
  Receipt Date: 20190208
  Transmission Date: 20190417
  Serious: Yes (Hospitalization, Other)
  Sender: FDA-Public Use
  Company Number: US-TEVA-2019-US-1009235

PATIENT
  Sex: Male

DRUGS (7)
  1. XARELTO [Concomitant]
     Active Substance: RIVAROXABAN
     Indication: COAGULOPATHY
     Dosage: WAS TAKING 20MG, BUT REDUCED TO 15MG IN THE LAST MONTH
     Dates: start: 201408
  2. MORPHINE EXTENDED RELEASE [Concomitant]
     Active Substance: MORPHINE
     Indication: BACK PAIN
     Dates: start: 201709
  3. TRAMADOL. [Concomitant]
     Active Substance: TRAMADOL
     Indication: BREAKTHROUGH PAIN
     Dates: start: 201701
  4. VORICONAZOLE TEVA [Suspect]
     Active Substance: VORICONAZOLE
     Indication: ANTIFUNGAL TREATMENT
     Dosage: 400 MILLIGRAM DAILY;
     Dates: start: 201612, end: 20171015
  5. VORICONAZOLE TEVA [Interacting]
     Active Substance: VORICONAZOLE
     Dates: start: 201512
  6. JADENU [Concomitant]
     Active Substance: DEFERASIROX
     Indication: IRON OVERLOAD
     Dosage: WAS TAKING THREE A DAY, THEN REDUCED TO TWO A DAY IN THE LAST MONTH
     Dates: start: 201704
  7. BOSULIF [Interacting]
     Active Substance: BOSUTINIB MONOHYDRATE
     Indication: CHRONIC MYELOID LEUKAEMIA
     Dosage: 500 MILLIGRAM DAILY;
     Route: 048
     Dates: start: 20170911

REACTIONS (11)
  - Nerve compression [Recovered/Resolved with Sequelae]
  - Aspergillus infection [Recovered/Resolved with Sequelae]
  - Neck pain [Recovered/Resolved with Sequelae]
  - Musculoskeletal pain [Recovered/Resolved with Sequelae]
  - Pyrexia [Recovered/Resolved with Sequelae]
  - Drug interaction [Recovered/Resolved with Sequelae]
  - Asthenia [Recovered/Resolved with Sequelae]
  - Oxygen saturation decreased [Recovered/Resolved with Sequelae]
  - Sepsis [Unknown]
  - Pain [Recovered/Resolved with Sequelae]
  - Infection [Recovered/Resolved with Sequelae]

NARRATIVE: CASE EVENT DATE: 201512
